FAERS Safety Report 4829546-9 (Version None)
Quarter: 2005Q4

REPORT INFORMATION
  Report Type: 
  Country: None (occurrence: None)
  Receive Date: 20051116
  Receipt Date: 20051017
  Transmission Date: 20060501
  Serious: Yes (Other)
  Sender: FDA-Public Use
  Company Number: US-GLAXOSMITHKLINE-A0578378A

PATIENT
  Age: 78 Year
  Sex: Male
  Weight: 77 kg

DRUGS (10)
  1. NICODERM CQ [Suspect]
     Route: 062
     Dates: start: 20041201
  2. PAXIL [Concomitant]
  3. WELLBUTRIN [Concomitant]
  4. DITROPAN [Concomitant]
  5. ARICEPT [Concomitant]
  6. DIURETIC [Concomitant]
  7. SPIRONOLACTONE [Concomitant]
  8. POTASSIUM UNSPECIFIED [Concomitant]
  9. C-PAP [Concomitant]
  10. HOMEOPATHIC MEDICATION [Concomitant]

REACTIONS (10)
  - ABNORMAL DREAMS [None]
  - BLOOD PRESSURE INCREASED [None]
  - DEPRESSION [None]
  - DIZZINESS [None]
  - EMPHYSEMA [None]
  - HALLUCINATION [None]
  - RENAL DISORDER [None]
  - RETCHING [None]
  - SINUSITIS [None]
  - URINARY TRACT INFECTION [None]
